FAERS Safety Report 19824399 (Version 2)
Quarter: 2021Q3

REPORT INFORMATION
  Report Type: Spontaneous
  Country: CN (occurrence: CN)
  Receive Date: 20210913
  Receipt Date: 20210922
  Transmission Date: 20211014
  Serious: Yes (Other)
  Sender: FDA-Public Use
  Company Number: CN-WOODWARD-2021-CN-000282

PATIENT
  Age: 33 Year
  Sex: Male
  Weight: 65 kg

DRUGS (4)
  1. BISMUTH POTASSIUM CITRATE [Concomitant]
     Active Substance: BISMUTH SUBCITRATE
     Dates: start: 20210827, end: 20210830
  2. TINIDAZOLE. [Concomitant]
     Active Substance: TINIDAZOLE
     Dosage: 1 DF, 12 HR
     Route: 048
     Dates: start: 20210827, end: 20210830
  3. ACIPHEX [Suspect]
     Active Substance: RABEPRAZOLE SODIUM
     Indication: ANTACID THERAPY
     Dosage: 20MG DAILY
     Route: 048
     Dates: start: 20210827, end: 20210827
  4. CLARITHROMYCIN. [Concomitant]
     Active Substance: CLARITHROMYCIN
     Dosage: 1 DF, 12 HR
     Route: 048
     Dates: start: 20210827, end: 20210830

REACTIONS (3)
  - Syncope [Recovered/Resolved]
  - Dizziness [Recovered/Resolved]
  - Chest discomfort [Recovered/Resolved]

NARRATIVE: CASE EVENT DATE: 20210827
